FAERS Safety Report 16705248 (Version 1)
Quarter: 2019Q3

REPORT INFORMATION
  Report Type: Spontaneous
  Country: DE (occurrence: DE)
  Receive Date: 20190815
  Receipt Date: 20190815
  Transmission Date: 20191004
  Serious: Yes (Hospitalization, Other)
  Sender: FDA-Public Use
  Company Number: DE-TEVA-2019-DE-1092466

PATIENT
  Age: 12 Week
  Sex: Male
  Weight: 14 kg

DRUGS (2)
  1. IBUPROFEN. [Concomitant]
     Active Substance: IBUPROFEN
     Indication: ANTIPYRESIS
     Route: 054
     Dates: end: 20190717
  2. CEFACLOR SAFT [Suspect]
     Active Substance: CEFACLOR
     Indication: PHARYNGITIS
     Dosage: DAILY DOSE: 9 ML MILLILITRE(S) EVERY DAYS 3 SEPARATED DOSES
     Route: 048
     Dates: start: 20190717

REACTIONS (3)
  - Haemoglobin decreased [Unknown]
  - Blood lactate dehydrogenase increased [Unknown]
  - Haemolysis [Unknown]

NARRATIVE: CASE EVENT DATE: 20190720
